FAERS Safety Report 22540534 (Version 1)
Quarter: 2023Q2

REPORT INFORMATION
  Report Type: Spontaneous
  Country: US (occurrence: None)
  Receive Date: 20230608
  Receipt Date: 20230608
  Transmission Date: 20230722
  Serious: No
  Sender: FDA-Public Use
  Company Number: None

PATIENT
  Age: 74 Year
  Sex: Male

DRUGS (15)
  1. ABIRATERONE ACETATE [Suspect]
     Active Substance: ABIRATERONE ACETATE
     Indication: Prostate cancer
     Dosage: ?4T QD PO
     Route: 048
     Dates: start: 20230127
  2. ASCORBIC ACID [Concomitant]
  3. CALCIUM [Concomitant]
     Active Substance: CALCIUM
  4. CAMBIA [Concomitant]
  5. CYMBALTA [Concomitant]
  6. FIRMAGON [Concomitant]
  7. DIVALPROEX [Concomitant]
  8. DULOXETINE [Concomitant]
  9. EB-N5 [Concomitant]
  10. LISINOPRIL [Concomitant]
  11. NORCO [Concomitant]
  12. OXBUTYNIN [Concomitant]
  13. TIZANIDINE [Concomitant]
     Active Substance: TIZANIDINE
  14. PREDNISONE [Concomitant]
  15. PROPRANOLOL [Concomitant]

REACTIONS (1)
  - Hospice care [None]

NARRATIVE: CASE EVENT DATE: 20230531
